FAERS Safety Report 19432051 (Version 1)
Quarter: 2021Q2

REPORT INFORMATION
  Report Type: Spontaneous
  Country: JP (occurrence: JP)
  Receive Date: 20210618
  Receipt Date: 20210618
  Transmission Date: 20210717
  Serious: Yes (Other)
  Sender: FDA-Public Use
  Company Number: JP-TEVA-2021-JP-002949J

PATIENT
  Age: 8 Decade

DRUGS (4)
  1. SULPIRIDE TABLET 50MG TYK [Suspect]
     Active Substance: SULPIRIDE
     Indication: LISTLESS
     Dosage: 50 MILLIGRAM DAILY;
     Route: 048
     Dates: end: 202102
  2. SULPIRIDE TABLET 50MG TYK [Suspect]
     Active Substance: SULPIRIDE
     Indication: DECREASED APPETITE
     Dosage: 100 MILLIGRAM DAILY;
     Route: 048
     Dates: start: 202007, end: 202010
  3. CONSTAN 0.4MG.TABLETS [Suspect]
     Active Substance: ALPRAZOLAM
     Indication: PRODUCT USED FOR UNKNOWN INDICATION
     Dosage: 2 MILLIGRAM DAILY;
     Route: 065
     Dates: start: 2021
  4. SULPIRIDE TABLET 50MG TYK [Suspect]
     Active Substance: SULPIRIDE
     Indication: INSOMNIA
     Route: 048
     Dates: start: 2021, end: 202105

REACTIONS (2)
  - Tremor [Unknown]
  - Parkinson^s disease [Unknown]

NARRATIVE: CASE EVENT DATE: 2021
